FAERS Safety Report 7692849-7 (Version None)
Quarter: 2011Q3

REPORT INFORMATION
  Report Type: 
  Country: None (occurrence: None)
  Receive Date: 20110819
  Receipt Date: 20110808
  Transmission Date: 20111222
  Serious: Yes (Congenital Anomaly)
  Sender: FDA-Public Use
  Company Number: US-UCBSA-8037269

PATIENT
  Sex: Male
  Weight: 3.607 kg

DRUGS (4)
  1. FOLIC ACID [Concomitant]
     Indication: PREGNANCY
     Dosage: DOSE FREQ.: DAILY
     Route: 064
     Dates: start: 20071120, end: 20080707
  2. FERROUS SULFATE TAB [Concomitant]
     Indication: ANAEMIA
     Dosage: DOSE FREQ.: DAILY; TOTAL DAILY DOSE:975MG
     Route: 064
     Dates: end: 20071126
  3. PRENATAL VITAMINS [Concomitant]
     Indication: PREGNANCY
     Dosage: DOSE FREQ.: DAILY; TOTAL DAILY DOSE:1DF
     Route: 064
     Dates: start: 20071120, end: 20080707
  4. KEPPRA [Suspect]
     Indication: EPILEPSY
     Route: 064
     Dates: start: 20071017, end: 20080707

REACTIONS (7)
  - ORAL CANDIDIASIS [None]
  - BRONCHIOLITIS [None]
  - MATERNAL EXPOSURE DURING PREGNANCY [None]
  - UPPER RESPIRATORY TRACT INFECTION [None]
  - OTITIS MEDIA [None]
  - CLEFT LIP [None]
  - BRONCHIAL HYPERREACTIVITY [None]
